FAERS Safety Report 12088621 (Version 1)
Quarter: 2016Q1

REPORT INFORMATION
  Report Type: Spontaneous
  Country: US (occurrence: US)
  Receive Date: 20160218
  Receipt Date: 20160218
  Transmission Date: 20160526
  Serious: Yes (Other)
  Sender: FDA-Public Use
  Company Number: US-PAR PHARMACEUTICAL COMPANIES-2016SCPR015171

PATIENT

DRUGS (8)
  1. HYDROXYUREA. [Suspect]
     Active Substance: HYDROXYUREA
     Dosage: 1 DF, OD
     Route: 048
     Dates: start: 201602
  2. HYDROXYUREA. [Suspect]
     Active Substance: HYDROXYUREA
     Indication: POLYCYTHAEMIA VERA
     Dosage: 1 DF, OD
     Route: 048
     Dates: start: 201502, end: 201503
  3. HYDROXYUREA. [Suspect]
     Active Substance: HYDROXYUREA
     Dosage: 1 DF, TID, 2 CAPSULES IN THE MORNING AND 1 CAPSULE IN THE EVENING
     Route: 048
     Dates: start: 20151026, end: 20160118
  4. PLAVIX [Concomitant]
     Active Substance: CLOPIDOGREL BISULFATE
     Indication: PRODUCT USED FOR UNKNOWN INDICATION
     Dosage: 1 DF, OD
     Route: 048
  5. HYDROXYUREA. [Suspect]
     Active Substance: HYDROXYUREA
     Dosage: 3 DF/ DAY,  2 CAPSULES IN THE MORNING AND 1 CAPSULE IN THE EVENING EVERY MONDAY, WEDNESDAY, FRIDAY
     Route: 048
     Dates: start: 201503, end: 201510
  6. METOPROLOL. [Concomitant]
     Active Substance: METOPROLOL
     Indication: CARDIAC DISORDER
     Dosage: 1 DF, BID, 1 TABLET IN THE MORNING AND 1 TABLET IN THE EVENING
     Route: 048
  7. HYDROXYUREA. [Suspect]
     Active Substance: HYDROXYUREA
     Dosage: 2 DF/ DAY, 3 DF, 1 CAPSULE IN THE MORNING AND 1 CAPSULE IN THE EVENING EVERY SATURDAY AND SUNDAY
     Route: 048
     Dates: start: 201503, end: 201510
  8. HYDROXYUREA. [Suspect]
     Active Substance: HYDROXYUREA
     Dosage: 1 DF/ DAY, EVERY MONDAY, WEDNESDAY, FRIDAY AND SUNDAY
     Route: 048
     Dates: start: 20160201, end: 201602

REACTIONS (5)
  - Platelet count increased [Unknown]
  - Haemoglobin decreased [Unknown]
  - Product use issue [Unknown]
  - White blood cell count decreased [Unknown]
  - Red blood cell count decreased [Unknown]

NARRATIVE: CASE EVENT DATE: 201502
